FAERS Safety Report 18098380 (Version 1)
Quarter: 2020Q3

REPORT INFORMATION
  Report Type: Spontaneous
  Country: US (occurrence: US)
  Receive Date: 20200731
  Receipt Date: 20200731
  Transmission Date: 20201103
  Serious: No
  Sender: FDA-Public Use
  Company Number: US-PFIZER INC-2019562327

PATIENT
  Age: 71 Year
  Sex: Female
  Weight: 88 kg

DRUGS (1)
  1. IBRANCE [Suspect]
     Active Substance: PALBOCICLIB
     Dosage: 125 MG, CYCLIC(1 TABLET DAILY FOR 21 DAYS THEN OFF FOR 7 DAYS)
     Route: 048
     Dates: end: 20200721

REACTIONS (1)
  - Hypoacusis [Unknown]
